FAERS Safety Report 4622283-5 (Version None)
Quarter: 2005Q1

REPORT INFORMATION
  Report Type: 
  Country: None (occurrence: None)
  Receive Date: 20050324
  Receipt Date: 20050324
  Transmission Date: 20050727
  Serious: No
  Sender: FDA-Public Use
  Company Number: None

PATIENT
  Sex: Male
  Weight: 49 kg

DRUGS (5)
  1. METHADONE 10MG TABLET [Suspect]
     Indication: CANCER PAIN
     Dosage: 40MG DAILY PO
     Route: 048
     Dates: start: 20041219, end: 20041220
  2. METHADONE 10MG TABLET [Suspect]
     Indication: METASTATIC NEOPLASM
     Dosage: 40MG DAILY PO
     Route: 048
     Dates: start: 20041219, end: 20041220
  3. ZOFRAN [Concomitant]
  4. HALCION [Concomitant]
  5. REGLAN [Concomitant]

REACTIONS (1)
  - RESPIRATORY RATE DECREASED [None]
